FAERS Safety Report 7056662-6 (Version None)
Quarter: 2010Q4

REPORT INFORMATION
  Report Type: 
  Country: None (occurrence: None)
  Receive Date: 20101021
  Receipt Date: 20101007
  Transmission Date: 20110411
  Serious: Yes (Hospitalization, Other)
  Sender: FDA-Public Use
  Company Number: US-ELI_LILLY_AND_COMPANY-US201010001858

PATIENT
  Age: 72 Year
  Sex: Male

DRUGS (20)
  1. FORTEO [Suspect]
     Indication: OSTEOPOROSIS
     Dosage: 20 UG, DAILY (1/D)
     Dates: start: 20100301
  2. FORTEO [Suspect]
     Dosage: 20 UG, DAILY (1/D)
  3. GABAPENTIN [Concomitant]
     Dosage: 300 MG, 3/D
  4. TRAZODONE [Concomitant]
  5. VITAMIN D [Concomitant]
  6. FAMOTIDINE [Concomitant]
  7. PANTOPRAZOLE SODIUM [Concomitant]
  8. LUMIGAN [Concomitant]
  9. LEVOTHYROXINE [Concomitant]
  10. QUININE [Concomitant]
  11. ZOCOR [Concomitant]
  12. METOPROLOL SUCCINATE [Concomitant]
  13. LISINOPRIL [Concomitant]
  14. ZOLOFT [Concomitant]
  15. HUMALOG [Concomitant]
  16. ANDROGEL [Concomitant]
  17. ASPIRIN [Concomitant]
     Dosage: 81 MG, UNKNOWN
  18. IRON [Concomitant]
  19. MULTI-VITAMIN [Concomitant]
  20. BOTOX [Concomitant]

REACTIONS (4)
  - DRY EYE [None]
  - EYELID FUNCTION DISORDER [None]
  - EYELID PAIN [None]
  - KNEE ARTHROPLASTY [None]
